FAERS Safety Report 8328065-5 (Version None)
Quarter: 2012Q2

REPORT INFORMATION
  Report Type: 
  Country: None (occurrence: None)
  Receive Date: 20120502
  Receipt Date: 20120424
  Transmission Date: 20120825
  Serious: Yes (Hospitalization, Other)
  Sender: FDA-Public Use
  Company Number: US-BAYER-2012-033690

PATIENT
  Age: 51 Year
  Sex: Female

DRUGS (6)
  1. ANALGESICS [Concomitant]
  2. NEXAVAR [Suspect]
     Dosage: 200 MG, BID
     Dates: start: 20120326
  3. NEXAVAR [Suspect]
     Indication: HEPATIC NEOPLASM MALIGNANT
     Dosage: 200 MG, BID
     Dates: start: 20111226
  4. ANTIBIOTICS [Concomitant]
  5. NEXAVAR [Suspect]
     Dosage: 200 MG, BID
     Dates: start: 20120402, end: 20120404
  6. BENADRYL [Concomitant]
     Indication: PRURITUS
     Dosage: UNK UNK, PRN
     Route: 048
     Dates: start: 20120401

REACTIONS (15)
  - APPENDICITIS PERFORATED [None]
  - NAUSEA [None]
  - ERYTHEMA [None]
  - PYREXIA [None]
  - DEHYDRATION [None]
  - URTICARIA [None]
  - OROPHARYNGEAL BLISTERING [None]
  - LIP SWELLING [None]
  - DIARRHOEA [None]
  - VOMITING [None]
  - BLOOD SODIUM DECREASED [None]
  - SKIN WARM [None]
  - ABDOMINAL PAIN UPPER [None]
  - PRURITUS [None]
  - RASH [None]
